FAERS Safety Report 25688997 (Version 1)
Quarter: 2025Q3

REPORT INFORMATION
  Report Type: Spontaneous
  Country: JP (occurrence: JP)
  Receive Date: 20250818
  Receipt Date: 20250818
  Transmission Date: 20251021
  Serious: Yes (Hospitalization)
  Sender: NEXUS PHARMACEUTICALS
  Company Number: JP-Nexus Pharma-000450

PATIENT
  Age: 59 Year
  Sex: Male

DRUGS (6)
  1. TACROLIMUS [Suspect]
     Active Substance: TACROLIMUS
     Indication: Interstitial lung disease
  2. NINTEDANIB [Concomitant]
     Active Substance: NINTEDANIB
     Indication: Interstitial lung disease
  3. GARENOXACIN [Concomitant]
     Active Substance: GARENOXACIN
  4. METHYLPREDNISOLONE [Concomitant]
     Active Substance: METHYLPREDNISOLONE
  5. MINOCYCLINE [Concomitant]
     Active Substance: MINOCYCLINE HYDROCHLORIDE
  6. IMMUNOGLOBULIN [Concomitant]
     Indication: Hypogammaglobulinaemia
     Route: 042

REACTIONS (2)
  - Hyperferritinaemia [Recovered/Resolved]
  - Drug resistance [Unknown]
